FAERS Safety Report 25678631 (Version 1)
Quarter: 2025Q3

REPORT INFORMATION
  Report Type: Spontaneous
  Country: US (occurrence: US)
  Receive Date: 20250814
  Receipt Date: 20250814
  Transmission Date: 20251020
  Serious: No
  Sender: RANBAXY
  Company Number: US-SUN PHARMACEUTICAL INDUSTRIES LTD-2025R1-500469

PATIENT
  Sex: Male

DRUGS (3)
  1. ODOMZO [Suspect]
     Active Substance: SONIDEGIB
     Indication: Basal cell carcinoma
     Dosage: 200 MILLIGRAM, QD (ONE CAPSULE)
     Route: 048
     Dates: start: 20241211
  2. ODOMZO [Suspect]
     Active Substance: SONIDEGIB
     Dosage: 200 MILLIGRAM, QD
     Route: 048
  3. ODOMZO [Suspect]
     Active Substance: SONIDEGIB
     Dosage: 200 MILLIGRAM, QD
     Route: 048

REACTIONS (6)
  - Ageusia [Unknown]
  - Weight decreased [Unknown]
  - Anosmia [Unknown]
  - Diarrhoea [Unknown]
  - Eating disorder [Unknown]
  - Depression [Unknown]
